FAERS Safety Report 25015910 (Version 1)
Quarter: 2025Q1

REPORT INFORMATION
  Report Type: Spontaneous
  Country: US (occurrence: US)
  Receive Date: 20250227
  Receipt Date: 20250227
  Transmission Date: 20250408
  Serious: No
  Sender: AMNEAL
  Company Number: US-AMNEAL PHARMACEUTICALS-2024-AMRX-04634

PATIENT
  Sex: Female
  Weight: 35.5 kg

DRUGS (3)
  1. CREXONT [Suspect]
     Active Substance: CARBIDOPA\LEVODOPA
     Indication: Parkinson^s disease
     Route: 065
  2. CREXONT [Suspect]
     Active Substance: CARBIDOPA\LEVODOPA
     Dosage: 02 CAPSULES (52.5/210 MG), 3X/DAY
     Route: 048
     Dates: start: 20241221
  3. CREXONT [Suspect]
     Active Substance: CARBIDOPA\LEVODOPA
     Dosage: 02 CAPSULES (52.5/210 MG), 4X/DAY
     Route: 048

REACTIONS (6)
  - Feeling abnormal [Unknown]
  - Drug intolerance [Unknown]
  - Dyskinesia [Unknown]
  - Nausea [Unknown]
  - Drug effect less than expected [Unknown]
  - Treatment noncompliance [Unknown]
